FAERS Safety Report 5796297-6 (Version None)
Quarter: 2008Q2

REPORT INFORMATION
  Report Type: 
  Country: None (occurrence: None)
  Receive Date: 20080626
  Receipt Date: 20080613
  Transmission Date: 20081010
  Serious: Yes (Hospitalization)
  Sender: FDA-Public Use
  Company Number: 234763J08USA

PATIENT
  Age: 58 Year
  Sex: Female
  Weight: 71.2147 kg

DRUGS (4)
  1. REBIF [Suspect]
     Indication: MULTIPLE SCLEROSIS
     Dosage: 44 MCG, 3 IN 1 WEEKS, SUBCUTANEOUS
     Route: 058
     Dates: start: 20080229, end: 20080515
  2. ARAVA [Concomitant]
  3. TRILEPTAL [Concomitant]
  4. ZOCOR [Concomitant]

REACTIONS (1)
  - PANCREATITIS [None]
